FAERS Safety Report 26005984 (Version 1)
Quarter: 2025Q4

REPORT INFORMATION
  Report Type: Spontaneous
  Country: US (occurrence: None)
  Receive Date: 20251105
  Receipt Date: 20251105
  Transmission Date: 20260118
  Serious: Yes (Death)
  Sender: FDA-CTU
  Company Number: None

PATIENT
  Age: 60 Year
  Sex: Female

DRUGS (2)
  1. INSULIN NOS [Suspect]
     Active Substance: INSULIN NOS
  2. DEVICE [Suspect]
     Active Substance: DEVICE

REACTIONS (10)
  - Hyperglycaemia [None]
  - Pulseless electrical activity [None]
  - Cardiac arrest [None]
  - Metabolic acidosis [None]
  - Diabetic ketoacidosis [None]
  - Encephalopathy [None]
  - Renal failure [None]
  - Respiratory failure [None]
  - Drug ineffective [None]
  - Device malfunction [None]
